FAERS Safety Report 22352095 (Version 1)
Quarter: 2023Q2

REPORT INFORMATION
  Report Type: Spontaneous
  Country: US (occurrence: US)
  Receive Date: 20230522
  Receipt Date: 20230522
  Transmission Date: 20230722
  Serious: No
  Sender: FDA-Public Use
  Company Number: US-PFIZER INC-PV202300088474

PATIENT
  Age: 31 Year
  Sex: Female

DRUGS (1)
  1. NURTEC ODT [Suspect]
     Active Substance: RIMEGEPANT SULFATE
     Dosage: PLACE 1 TABLET ON OR UNDER THE TONGUE AS NEEDED, MAX 1 TABLET PER DAY
     Route: 048

REACTIONS (1)
  - Influenza like illness [Recovered/Resolved]
